FAERS Safety Report 7370751-8 (Version None)
Quarter: 2011Q1

REPORT INFORMATION
  Report Type: 
  Country: None (occurrence: None)
  Receive Date: 20110323
  Receipt Date: 20110301
  Transmission Date: 20110831
  Serious: Yes (Other)
  Sender: FDA-Public Use
  Company Number: US-BAYER-201032259NA

PATIENT
  Sex: Male
  Weight: 99.773 kg

DRUGS (31)
  1. NPH INSULIN [Concomitant]
  2. METOPROLOL [Concomitant]
  3. CARDURA [Concomitant]
  4. PHOSLO [Concomitant]
  5. DIOVAN [Concomitant]
  6. GADOLINIUM IN UNSPECIFIED DRUG [Suspect]
     Dosage: UNK
     Dates: start: 19960909, end: 19960909
  7. GADOLINIUM IN UNSPECIFIED DRUG [Suspect]
     Dosage: UNK
     Dates: start: 20030711, end: 20030711
  8. GADOLINIUM IN UNSPECIFIED DRUG [Suspect]
     Dosage: UNK
     Dates: start: 20060330, end: 20060330
  9. NEPHROCAPS [Concomitant]
  10. ACYCLOVIR [Concomitant]
  11. MIDODRINE HYDROCHLORIDE [Concomitant]
  12. ENBREL [Concomitant]
  13. CARDIZEM [Concomitant]
  14. FOSRENOL [Concomitant]
  15. OMNISCAN [Suspect]
     Indication: NUCLEAR MAGNETIC RESONANCE IMAGING
  16. OPTIMARK [Suspect]
     Indication: NUCLEAR MAGNETIC RESONANCE IMAGING
  17. INDERAL [Concomitant]
  18. MAGNEVIST [Suspect]
     Indication: NUCLEAR MAGNETIC RESONANCE IMAGING
  19. GADOLINIUM IN UNSPECIFIED DRUG [Suspect]
     Dosage: 20 ML, ONCE
     Dates: start: 20060512, end: 20060512
  20. ERGOCALCIFEROL [Concomitant]
  21. QUININE SULFATE [Concomitant]
  22. ESOMEPRAZOLE [Concomitant]
  23. IRON SUPPLEMENT [Concomitant]
  24. VENOFER [Concomitant]
  25. MULTIHANCE [Suspect]
     Indication: NUCLEAR MAGNETIC RESONANCE IMAGING
  26. PROHANCE [Suspect]
     Indication: NUCLEAR MAGNETIC RESONANCE IMAGING
  27. EPOGEN [Concomitant]
  28. PREDNISONE [Concomitant]
  29. FLUCONAZOLE [Concomitant]
  30. RYTHMOL [Concomitant]
  31. HECTOROL [Concomitant]

REACTIONS (12)
  - MUSCULOSKELETAL STIFFNESS [None]
  - GAIT DISTURBANCE [None]
  - SKIN TIGHTNESS [None]
  - ERYTHEMA [None]
  - NEPHROGENIC SYSTEMIC FIBROSIS [None]
  - JOINT RANGE OF MOTION DECREASED [None]
  - MOBILITY DECREASED [None]
  - PLEURAL FIBROSIS [None]
  - SKIN INDURATION [None]
  - PAIN [None]
  - SKIN HYPERPIGMENTATION [None]
  - HYPOAESTHESIA [None]
